FAERS Safety Report 9458263 (Version 1)
Quarter: 2013Q3

REPORT INFORMATION
  Report Type: Spontaneous
  Country: AU (occurrence: AU)
  Receive Date: 20130814
  Receipt Date: 20130814
  Transmission Date: 20140515
  Serious: Yes (Other)
  Sender: FDA-Public Use
  Company Number: AU-PFIZER INC-2013233253

PATIENT
  Age: 3 Year
  Sex: Female
  Weight: 17 kg

DRUGS (6)
  1. PIPERACILLIN [Suspect]
     Dosage: 3.4 G, 1X/DAY
     Route: 042
     Dates: start: 19910411, end: 19910509
  2. METRONIDAZOLE [Suspect]
     Indication: PYREXIA
     Dosage: 390 MG, 1X/DAY
     Route: 042
     Dates: start: 19910418, end: 19910506
  3. VANCOMYCIN HYDROCHLORIDE [Suspect]
     Dosage: 1 G, 1X/DAY
     Route: 042
     Dates: start: 19910417, end: 19910420
  4. CYTARABINE [Suspect]
     Indication: ACUTE MYELOID LEUKAEMIA
     Dosage: 1.6 G, 1X/DAY
     Dates: start: 19910416, end: 19910419
  5. FLUCLOXACILLIN SODIUM [Suspect]
     Dosage: 3.6 G, 1X/DAY
     Route: 042
     Dates: start: 19910415, end: 19910509
  6. TOBRAMYCIN [Suspect]
     Indication: PYREXIA
     Dosage: 130 G, 1X/DAY
     Dates: start: 19910411, end: 19910420

REACTIONS (5)
  - Renal failure acute [Recovered/Resolved]
  - Convulsion [Recovered/Resolved]
  - Consciousness fluctuating [Recovered/Resolved]
  - Encephalopathy [Recovered/Resolved]
  - Aphasia [Recovered/Resolved]
